FAERS Safety Report 8809977 (Version 1)
Quarter: 2012Q4

REPORT INFORMATION
  Report Type: 
  Country: TW (occurrence: TW)
  Receive Date: 20120926
  Receipt Date: 20120926
  Transmission Date: 20130627
  Serious: Yes (Death, Hospitalization)
  Sender: FDA-Public Use
  Company Number: TW-PFIZER INC-2012233581

PATIENT
  Age: 70 Year
  Sex: Female

DRUGS (1)
  1. METRONIDAZOLE [Suspect]
     Indication: ABDOMINAL INFECTION
     Dosage: total dose of 41.25g

REACTIONS (1)
  - Encephalopathy [Fatal]
